FAERS Safety Report 7310409-4 (Version None)
Quarter: 2011Q1

REPORT INFORMATION
  Report Type: 
  Country: None (occurrence: None)
  Receive Date: 20110224
  Receipt Date: 20100810
  Transmission Date: 20110831
  Serious: No
  Sender: FDA-Public Use
  Company Number: US-BRISTOL-MYERS SQUIBB COMPANY-15205644

PATIENT
  Age: 74 Year
  Sex: Male

DRUGS (9)
  1. METFORMIN HCL [Suspect]
     Dates: start: 20060101, end: 20091101
  2. NOVOLOG [Concomitant]
  3. VITAMIN D [Concomitant]
  4. FISH OIL [Concomitant]
  5. LANTUS [Concomitant]
     Dosage: 1 DF =13 UNITS
  6. VITAMIN B-12 [Concomitant]
  7. GLUCOPHAGE [Suspect]
     Indication: DIABETES MELLITUS
     Dosage: 1 DF = 1/2TAB METFORMIN: 2006
     Route: 048
     Dates: start: 20091101
  8. METANX [Concomitant]
  9. ALTACE [Concomitant]

REACTIONS (1)
  - BLOOD HOMOCYSTEINE INCREASED [None]
